FAERS Safety Report 5469270-5 (Version None)
Quarter: 2007Q3

REPORT INFORMATION
  Report Type: 
  Country: None (occurrence: None)
  Receive Date: 20070924
  Receipt Date: 20070905
  Transmission Date: 20080115
  Serious: Yes (Hospitalization)
  Sender: FDA-Public Use
  Company Number: 6037778

PATIENT
  Age: 30 Year
  Sex: Female

DRUGS (5)
  1. BISOPROLOL FUMARATE [Suspect]
     Indication: VENTRICULAR TACHYCARDIA
     Dosage: (5 MG) ORAL
     Route: 048
     Dates: start: 20070730, end: 20070814
  2. DIAZEPAM [Concomitant]
  3. DOMPERIDONE               (DOMPERIDONE) [Concomitant]
  4. MEBEVERINE         (MEBEVERINE) [Concomitant]
  5. OMEPRAZOLE [Concomitant]

REACTIONS (2)
  - RASH PRURITIC [None]
  - SKIN BURNING SENSATION [None]
